FAERS Safety Report 7970489-X (Version None)
Quarter: 2011Q4

REPORT INFORMATION
  Report Type: 
  Country: None (occurrence: None)
  Receive Date: 20111212
  Receipt Date: 20111208
  Transmission Date: 20120403
  Serious: Yes (Death, Other)
  Sender: FDA-Public Use
  Company Number: PHHY2011MX88962

PATIENT
  Sex: Male

DRUGS (2)
  1. NIFEDIPINE [Concomitant]
     Dosage: 1 DF, UNK
  2. RASILEZ HCT [Suspect]
     Indication: HYPERTENSION
     Dosage: 1 DF, DAILY
     Dates: start: 20110711

REACTIONS (3)
  - ANAEMIA [None]
  - RENAL FAILURE [None]
  - CARDIAC ARREST [None]
